FAERS Safety Report 5961996-X (Version None)
Quarter: 2008Q4

REPORT INFORMATION
  Report Type: 
  Country: None (occurrence: None)
  Receive Date: 20081121
  Receipt Date: 20081110
  Transmission Date: 20090506
  Serious: Yes (Other)
  Sender: FDA-Public Use
  Company Number: IL-ROCHE-596508

PATIENT
  Sex: Female
  Weight: 60 kg

DRUGS (5)
  1. PEG-INTERFERON ALFA 2A (RO 25-8310) [Suspect]
     Dosage: DOSAGE FORM REPORTED AS: 180 MCG
     Route: 058
     Dates: start: 20061127
  2. RIBAVIRIN [Suspect]
     Route: 048
     Dates: start: 20061127
  3. CITALOPRAM HYDROBROMIDE [Concomitant]
     Dates: start: 20060701
  4. BROTIZOLAM [Concomitant]
     Dates: start: 20061201
  5. EPOGEN [Concomitant]
     Dates: start: 20070201

REACTIONS (2)
  - LYMPHOMA [None]
  - LYMPHOPROLIFERATIVE DISORDER [None]
